FAERS Safety Report 18903594 (Version 1)
Quarter: 2021Q1

REPORT INFORMATION
  Report Type: Spontaneous
  Country: US (occurrence: US)
  Receive Date: 20210216
  Receipt Date: 20210216
  Transmission Date: 20210420
  Serious: Yes (Other)
  Sender: FDA-Public Use
  Company Number: None

PATIENT
  Sex: Male

DRUGS (2)
  1. BIKTARVY [Suspect]
     Active Substance: BICTEGRAVIR SODIUM\EMTRICITABINE\TENOFOVIR ALAFENAMIDE FUMARATE
     Indication: HIV INFECTION
     Dosage: ?          OTHER DOSE:50/200/25M;?
     Route: 048
     Dates: start: 20210126
  2. SMZ?TMP DS 800/160MG AUROBINDO PHARMA [Suspect]
     Active Substance: SULFAMETHOXAZOLE\TRIMETHOPRIM
     Indication: HIV INFECTION
     Dosage: ?          OTHER DOSE:800/160MG;?
     Route: 048
     Dates: start: 20210126

REACTIONS (2)
  - Emergency care [None]
  - Adverse drug reaction [None]
